FAERS Safety Report 18444862 (Version 5)
Quarter: 2021Q3

REPORT INFORMATION
  Report Type: Spontaneous
  Country: US (occurrence: US)
  Receive Date: 20201030
  Receipt Date: 20210926
  Transmission Date: 20211014
  Serious: No
  Sender: FDA-Public Use
  Company Number: US-DSJP-DSU-2020-131832

PATIENT
  Sex: Female

DRUGS (2)
  1. TURALIO [Suspect]
     Active Substance: PEXIDARTINIB HYDROCHLORIDE
     Dosage: 200 MG, BID
     Route: 048
     Dates: start: 20201030
  2. TURALIO [Suspect]
     Active Substance: PEXIDARTINIB HYDROCHLORIDE
     Indication: GIANT CELL TUMOUR OF TENDON SHEATH
     Dosage: 200 MG, BID
     Route: 048
     Dates: start: 20201030

REACTIONS (5)
  - Hair colour changes [Unknown]
  - COVID-19 [Not Recovered/Not Resolved]
  - Pain in extremity [Not Recovered/Not Resolved]
  - Fatigue [Unknown]
  - Asthenia [Unknown]
